FAERS Safety Report 5276413-5 (Version None)
Quarter: 2007Q1

REPORT INFORMATION
  Report Type: 
  Country: None (occurrence: None)
  Receive Date: 20061213
  Receipt Date: 20030930
  Transmission Date: 20070707
  Serious: No
  Sender: FDA-Public Use
  Company Number: 2003UW12566

PATIENT
  Age: 28 Year
  Sex: Male
  Weight: 80.2867 kg

DRUGS (3)
  1. SEROQUEL [Suspect]
     Indication: DEPRESSION
     Dosage: 500 MG DAILY PO
     Route: 048
  2. SEROQUEL [Suspect]
     Indication: PSYCHOTIC DISORDER
     Dosage: 500 MG DAILY PO
     Route: 048
  3. PROZAC [Concomitant]

REACTIONS (1)
  - PRIAPISM [None]
